FAERS Safety Report 9063247 (Version 1)
Quarter: 2013Q1

REPORT INFORMATION
  Report Type: Spontaneous
  Country: FR (occurrence: FR)
  Receive Date: 20130213
  Receipt Date: 20130213
  Transmission Date: 20140127
  Serious: Yes (Hospitalization)
  Sender: FDA-Public Use
  Company Number: FR-GLAXOSMITHKLINE-B0865449A

PATIENT
  Age: 72 Year
  Sex: Female

DRUGS (3)
  1. ZELITREX [Suspect]
     Indication: HERPES VIRUS INFECTION
     Route: 048
     Dates: start: 20121211, end: 20121212
  2. VICKS VAPORUB [Suspect]
     Indication: PRODUCT USED FOR UNKNOWN INDICATION
     Route: 061
     Dates: start: 20121209, end: 20121211
  3. CEFACLOR [Suspect]
     Indication: INFECTION
     Route: 048
     Dates: start: 20121211, end: 20121212

REACTIONS (3)
  - Drug eruption [Recovered/Resolved]
  - Pruritus [Recovered/Resolved]
  - Eczema [Recovered/Resolved]
